FAERS Safety Report 13802584 (Version 3)
Quarter: 2021Q2

REPORT INFORMATION
  Report Type: Report from Study
  Country: JP (occurrence: JP)
  Receive Date: 20170726
  Receipt Date: 20210405
  Transmission Date: 20210716
  Serious: Yes (Other)
  Sender: FDA-Public Use
  Company Number: JP-INCYTE CORPORATION-2017IN005757

PATIENT

DRUGS (10)
  1. JAKAVI [Suspect]
     Active Substance: RUXOLITINIB
     Dosage: 15 MG, BID
     Route: 048
     Dates: start: 20151001, end: 20151014
  2. JAKAVI [Suspect]
     Active Substance: RUXOLITINIB
     Dosage: 20 MG, BID
     Route: 048
     Dates: start: 20151015, end: 20160127
  3. JAKAVI [Suspect]
     Active Substance: RUXOLITINIB
     Indication: PRIMARY MYELOFIBROSIS
     Dosage: 10 MG, BID
     Route: 048
     Dates: start: 20150819, end: 20150826
  4. JAKAVI [Suspect]
     Active Substance: RUXOLITINIB
     Dosage: 35 MG (IN TWO DIVIDED DOSES), BID
     Route: 048
     Dates: start: 20160328, end: 20160424
  5. JAKAVI [Suspect]
     Active Substance: RUXOLITINIB
     Dosage: 35 MG (IN TWO DIVIDED DOSES), BID
     Route: 048
     Dates: start: 20160728
  6. JAKAVI [Suspect]
     Active Substance: RUXOLITINIB
     Dosage: 20 MG, BID
     Route: 048
     Dates: start: 20160229, end: 20160327
  7. JAKAVI [Suspect]
     Active Substance: RUXOLITINIB
     Dosage: 20 MG, BID
     Route: 048
     Dates: start: 20160425, end: 20160727
  8. JAKAVI [Suspect]
     Active Substance: RUXOLITINIB
     Dosage: 20 MG, BID
     Route: 048
     Dates: start: 20150827, end: 20150930
  9. JAKAVI [Suspect]
     Active Substance: RUXOLITINIB
     Dosage: 35 MG (IN TWO DIVIDED DOSES), BID
     Route: 048
     Dates: start: 20160128, end: 20160228
  10. LEUKERIN [Concomitant]
     Active Substance: MERCAPTOPURINE
     Indication: MYELOFIBROSIS
     Dosage: 10 MG, UNK
     Route: 048
     Dates: end: 20150820

REACTIONS (13)
  - Blood pressure systolic increased [Unknown]
  - Nephrogenic anaemia [Unknown]
  - Anaemia [Recovered/Resolved]
  - Anaemia [Recovered/Resolved]
  - Concomitant disease progression [Unknown]
  - Anaemia [Recovered/Resolved]
  - Haemoglobin decreased [Unknown]
  - Diabetic nephropathy [Unknown]
  - Anaemia [Recovered/Resolved]
  - Anaemia [Unknown]
  - Anaemia [Recovered/Resolved]
  - Myelofibrosis [Unknown]
  - White blood cell count increased [Recovered/Resolved]

NARRATIVE: CASE EVENT DATE: 20151001
